FAERS Safety Report 5366905-2 (Version None)
Quarter: 2007Q2

REPORT INFORMATION
  Report Type: 
  Country: None (occurrence: None)
  Receive Date: 20070622
  Receipt Date: 20070201
  Transmission Date: 20071010
  Serious: No
  Sender: FDA-Public Use
  Company Number: US-ASTRAZENECA-2007UW02215

PATIENT
  Age: 69 Year
  Sex: Female

DRUGS (2)
  1. RHINOCORT [Suspect]
     Indication: SINUS HEADACHE
     Dosage: ONCE A DAY FOR 3 OR 4 DAYS
     Route: 045
  2. LEVAQUIN [Concomitant]

REACTIONS (4)
  - BRONCHITIS [None]
  - CHEST DISCOMFORT [None]
  - DYSPNOEA [None]
  - SINUSITIS [None]
